FAERS Safety Report 23402065 (Version 1)
Quarter: 2024Q1

REPORT INFORMATION
  Report Type: Spontaneous
  Country: US (occurrence: US)
  Receive Date: 20240115
  Receipt Date: 20240115
  Transmission Date: 20240410
  Serious: Yes (Hospitalization, Other)
  Sender: FDA-Public Use
  Company Number: US-002147023-NVSC2024US006965

PATIENT
  Age: 82 Year
  Sex: Male
  Weight: 75.283 kg

DRUGS (1)
  1. PLUVICTO [Suspect]
     Active Substance: LUTETIUM LU-177 VIPIVOTIDE TETRAXETAN
     Indication: Prostate cancer
     Dosage: 200 MCI (EVERY SIX WEEKS BUT PATIENT ONLY RECEIVED ONE DOSE)
     Route: 042
     Dates: start: 20230810, end: 20230810

REACTIONS (2)
  - Subdural hygroma [Recovering/Resolving]
  - Confusional state [Recovering/Resolving]

NARRATIVE: CASE EVENT DATE: 20231019
